FAERS Safety Report 8152568 (Version 2)
Quarter: 2013Q2

REPORT INFORMATION
  Report Type: Spontaneous
  Country: US (occurrence: US)
  Receive Date: 20110922
  Receipt Date: 20130425
  Transmission Date: 20140414
  Serious: No
  Sender: FDA-Public Use
  Company Number: US-ASTRAZENECA-2011SE40779

PATIENT
  Age: 52 Year
  Sex: Female
  Weight: 69.9 kg

DRUGS (12)
  1. SEROQUEL XR [Suspect]
     Indication: DEPRESSION
     Route: 048
     Dates: start: 2007, end: 2010
  2. SEROQUEL XR [Suspect]
     Indication: BIPOLAR DISORDER
     Route: 048
     Dates: start: 2007, end: 2010
  3. SEROQUEL XR [Suspect]
     Indication: SLEEP DISORDER
     Route: 048
     Dates: start: 2007, end: 2010
  4. SEROQUEL XR [Suspect]
     Indication: DEPRESSION
     Route: 048
     Dates: start: 2010
  5. SEROQUEL XR [Suspect]
     Indication: BIPOLAR DISORDER
     Route: 048
     Dates: start: 2010
  6. SEROQUEL XR [Suspect]
     Indication: SLEEP DISORDER
     Route: 048
     Dates: start: 2010
  7. SEROQUEL XR [Suspect]
     Indication: DEPRESSION
     Route: 048
  8. SEROQUEL XR [Suspect]
     Indication: BIPOLAR DISORDER
     Route: 048
  9. SEROQUEL XR [Suspect]
     Indication: SLEEP DISORDER
     Route: 048
  10. TYLENOL [Concomitant]
     Dosage: PRN
  11. ATIVAN [Concomitant]
     Indication: DEPRESSION
     Dosage: AS REQUIRED
  12. PROZAC [Concomitant]

REACTIONS (7)
  - Post-traumatic stress disorder [Unknown]
  - Depression [Unknown]
  - Therapeutic response unexpected [Unknown]
  - Insomnia [Unknown]
  - Intentional drug misuse [Unknown]
  - Drug dose omission [Unknown]
  - Drug ineffective [Unknown]
